FAERS Safety Report 7474398-4 (Version None)
Quarter: 2011Q2

REPORT INFORMATION
  Report Type: 
  Country: None (occurrence: None)
  Receive Date: 20110512
  Receipt Date: 20110106
  Transmission Date: 20111010
  Serious: Yes (Other)
  Sender: FDA-Public Use
  Company Number: CN-BAYER-2011-001918

PATIENT
  Age: 94 Year
  Sex: Female

DRUGS (2)
  1. OXYGEN [Concomitant]
  2. AVELOX [Suspect]
     Indication: LUNG INFECTION
     Dosage: 400 MG, QD
     Dates: start: 20080919, end: 20080920

REACTIONS (7)
  - DELUSIONAL PERCEPTION [None]
  - SPEECH DISORDER [None]
  - MENTAL DISORDER [None]
  - INSOMNIA [None]
  - PERSECUTORY DELUSION [None]
  - TRANCE [None]
  - HALLUCINATION, VISUAL [None]
